FAERS Safety Report 7700052-7 (Version None)
Quarter: 2011Q3

REPORT INFORMATION
  Report Type: 
  Country: None (occurrence: None)
  Receive Date: 20110822
  Receipt Date: 20110809
  Transmission Date: 20111222
  Serious: Yes (Hospitalization, Disabling, Other)
  Sender: FDA-Public Use
  Company Number: US-ELI_LILLY_AND_COMPANY-US201103007399

PATIENT
  Sex: Male

DRUGS (7)
  1. CYMBALTA [Suspect]
     Indication: PANIC ATTACK
     Dosage: 60 MG, EACH MORNING
     Dates: start: 20090101
  2. CYMBALTA [Suspect]
     Dosage: 30 MG, EACH EVENING
     Dates: start: 20090101
  3. CYMBALTA [Suspect]
     Dosage: 30 MG, BID
  4. CYMBALTA [Suspect]
     Dosage: UNK UNK, UNKNOWN
  5. CYMBALTA [Suspect]
     Dosage: 30 MG, EACH EVENING
  6. CYMBALTA [Suspect]
     Dosage: 60 MG, EACH MORNING
  7. CARDIAC THERAPY [Concomitant]

REACTIONS (9)
  - GAIT DISTURBANCE [None]
  - WITHDRAWAL SYNDROME [None]
  - CARDIAC DISORDER [None]
  - FOOT FRACTURE [None]
  - TREMOR [None]
  - MOOD SWINGS [None]
  - BIPOLAR DISORDER [None]
  - AGITATION [None]
  - MALAISE [None]
